FAERS Safety Report 10730612 (Version 6)
Quarter: 2015Q1

REPORT INFORMATION
  Report Type: Spontaneous
  Country: US (occurrence: US)
  Receive Date: 20150122
  Receipt Date: 20150305
  Transmission Date: 20150721
  Serious: Yes (Hospitalization, Other)
  Sender: FDA-Public Use
  Company Number: US-UNITED THERAPEUTICS-UNT-2015-000371

PATIENT
  Age: 69 Year
  Sex: Male
  Weight: 70.3 kg

DRUGS (3)
  1. TYVASO [Suspect]
     Active Substance: TREPROSTINIL
     Indication: PULMONARY HYPERTENSION
     Dosage: 18-72 ?G, QID
     Dates: start: 20150105, end: 20150223
  2. TYVASO [Suspect]
     Active Substance: TREPROSTINIL
     Dosage: 18-72 ?G, QID
  3. ASPIRIN                            /00002701/ [Concomitant]
     Active Substance: ASPIRIN
     Indication: PRODUCT USED FOR UNKNOWN INDICATION

REACTIONS (15)
  - Cough [Unknown]
  - Drug dose omission [Unknown]
  - Heart rate increased [Unknown]
  - Oxygen saturation decreased [Unknown]
  - Speech disorder [Unknown]
  - Asthenia [Unknown]
  - Decreased activity [Unknown]
  - Condition aggravated [Unknown]
  - Dyspnoea [Unknown]
  - Heart rate decreased [Unknown]
  - Tachycardia [Unknown]
  - Fatigue [Unknown]
  - Therapy cessation [Unknown]
  - Chest discomfort [Unknown]
  - Dyspnoea exertional [Unknown]

NARRATIVE: CASE EVENT DATE: 201501
